FAERS Safety Report 6556978-3 (Version None)
Quarter: 2010Q1

REPORT INFORMATION
  Report Type: 
  Country: None (occurrence: None)
  Receive Date: 20100128
  Receipt Date: 20100112
  Transmission Date: 20100710
  Serious: Yes (Hospitalization)
  Sender: FDA-Public Use
  Company Number: FR-GENENTECH-296940

PATIENT
  Sex: Female

DRUGS (10)
  1. MABTHERA [Suspect]
     Indication: DIFFUSE LARGE B-CELL LYMPHOMA
     Dosage: 645 MG, UNK
     Route: 042
  2. ADRIAMYCIN PFS [Suspect]
     Indication: DIFFUSE LARGE B-CELL LYMPHOMA
     Dosage: 86 MG, UNK
     Route: 042
  3. ONCOVIN [Suspect]
     Indication: DIFFUSE LARGE B-CELL LYMPHOMA
     Dosage: 2 MG, UNK
     Route: 042
  4. ENDOXAN [Suspect]
     Indication: DIFFUSE LARGE B-CELL LYMPHOMA
     Dosage: 1290 MG, UNK
     Route: 042
  5. METHOTREXATE [Suspect]
     Indication: LUMBAR PUNCTURE
     Dosage: 15 MG, UNK
     Route: 065
     Dates: start: 20080825
  6. SOLU-MEDROL [Concomitant]
     Indication: DIFFUSE LARGE B-CELL LYMPHOMA
     Dosage: UNK
  7. SOLUPRED [Concomitant]
     Indication: DIFFUSE LARGE B-CELL LYMPHOMA
     Dosage: UNK
  8. FORTUM [Concomitant]
     Indication: PROPHYLAXIS
     Dosage: UNK
  9. AMIKIN [Concomitant]
     Indication: PROPHYLAXIS
     Dosage: UNK
  10. CARDIOXANE [Concomitant]
     Indication: DRUG USE FOR UNKNOWN INDICATION
     Dosage: UNK

REACTIONS (1)
  - BONE MARROW FAILURE [None]
